FAERS Safety Report 9241626 (Version 1)
Quarter: 2013Q2

REPORT INFORMATION
  Report Type: Spontaneous
  Country: US (occurrence: US)
  Receive Date: 20130419
  Receipt Date: 20130419
  Transmission Date: 20140414
  Serious: No
  Sender: FDA-Public Use
  Company Number: US-BAYER-2013-045965

PATIENT
  Age: 19 Year
  Sex: Female

DRUGS (1)
  1. SKYLA [Suspect]
     Indication: CONTRACEPTION
     Dosage: 13.5 MG, CONT
     Route: 015
     Dates: start: 20130314, end: 20130404

REACTIONS (1)
  - Device expulsion [None]
